FAERS Safety Report 16596182 (Version 1)
Quarter: 2019Q3

REPORT INFORMATION
  Report Type: Spontaneous
  Country: US (occurrence: US)
  Receive Date: 20190605
  Receipt Date: 20190605
  Transmission Date: 20191004
  Serious: Yes (Hospitalization)
  Sender: FDA-Public Use
  Company Number: None

PATIENT
  Age: 50 Year
  Sex: Female

DRUGS (2)
  1. NITROFURANTOIN. [Suspect]
     Active Substance: NITROFURANTOIN
     Indication: GASTROENTERITIS
     Dates: start: 20190311, end: 20190311
  2. NITROFURANTOIN. [Suspect]
     Active Substance: NITROFURANTOIN
     Indication: URINARY TRACT INFECTION
     Dates: start: 20190311, end: 20190311

REACTIONS (4)
  - Gastroenteritis [None]
  - Tachycardia [None]
  - Hepatic steatosis [None]
  - Ovarian cyst [None]

NARRATIVE: CASE EVENT DATE: 20190311
